FAERS Safety Report 23926784 (Version 1)
Quarter: 2024Q2

REPORT INFORMATION
  Report Type: Spontaneous
  Country: CA (occurrence: CA)
  Receive Date: 20240531
  Receipt Date: 20240531
  Transmission Date: 20240716
  Serious: Yes (Other)
  Sender: FDA-Public Use
  Company Number: CA-TEVA-VS-3203414

PATIENT
  Age: 71 Year
  Sex: Male

DRUGS (1)
  1. METOPROLOL [Suspect]
     Active Substance: METOPROLOL
     Route: 065

REACTIONS (3)
  - Head discomfort [Unknown]
  - Wrong technique in product usage process [Unknown]
  - Catheter placement [Unknown]

NARRATIVE: CASE EVENT DATE: 20050101
